APPROVED DRUG PRODUCT: TRIAMCINOLONE ACETONIDE
Active Ingredient: TRIAMCINOLONE ACETONIDE
Strength: 0.1%
Dosage Form/Route: OINTMENT;TOPICAL
Application: A087799 | Product #001
Applicant: ACTAVIS MID ATLANTIC LLC
Approved: Jun 7, 1982 | RLD: No | RS: No | Type: DISCN